FAERS Safety Report 20779979 (Version 1)
Quarter: 2022Q2

REPORT INFORMATION
  Report Type: Spontaneous
  Country: CO (occurrence: CO)
  Receive Date: 20220503
  Receipt Date: 20220503
  Transmission Date: 20220720
  Serious: Yes (Death, Other)
  Sender: FDA-Public Use
  Company Number: CO-PFIZER INC-202200650292

PATIENT
  Age: 70 Year
  Sex: Male

DRUGS (1)
  1. XELJANZ XR [Suspect]
     Active Substance: TOFACITINIB CITRATE
     Indication: Rheumatoid arthritis
     Dosage: 11 MG, UNSPECIFIED FRECUENCY
     Route: 048
     Dates: start: 2019, end: 20220330

REACTIONS (3)
  - Gastrointestinal cancer metastatic [Fatal]
  - Metastases to lung [Fatal]
  - Malaise [Unknown]

NARRATIVE: CASE EVENT DATE: 20220301
